FAERS Safety Report 8199193-2 (Version None)
Quarter: 2012Q1

REPORT INFORMATION
  Report Type: 
  Country: None (occurrence: None)
  Receive Date: 20120309
  Receipt Date: 20120305
  Transmission Date: 20120608
  Serious: Yes (Hospitalization)
  Sender: FDA-Public Use
  Company Number: JP-ABBOTT-12P-087-0902726-00

PATIENT
  Sex: Female
  Weight: 35.7 kg

DRUGS (12)
  1. PROGRAF [Suspect]
     Route: 048
     Dates: start: 20091207
  2. PREDNISOLONE [Suspect]
     Indication: RHEUMATOID ARTHRITIS
     Dates: start: 20060101
  3. ALFACALCIDOL [Concomitant]
     Indication: OSTEOPOROSIS
     Route: 048
     Dates: start: 20110803
  4. PROGRAF [Suspect]
     Indication: RHEUMATOID ARTHRITIS
     Route: 048
  5. URSODIOL [Concomitant]
     Indication: CHOLECYSTECTOMY
     Route: 048
     Dates: start: 20060101
  6. ALENDRONATE SODIUM [Concomitant]
     Indication: OSTEOPOROSIS
     Route: 048
     Dates: start: 20060101
  7. MIGLITOL [Concomitant]
     Indication: TYPE 2 DIABETES MELLITUS
     Route: 048
     Dates: start: 20070101
  8. HUMIRA [Suspect]
     Route: 058
     Dates: start: 20120221
  9. GEFARNATE [Concomitant]
     Indication: GASTRITIS
     Route: 048
     Dates: start: 20111207
  10. GLIMEPIRIDE [Concomitant]
     Indication: TYPE 2 DIABETES MELLITUS
     Route: 048
     Dates: start: 20060101
  11. HUMIRA [Suspect]
     Indication: RHEUMATOID ARTHRITIS
     Route: 058
     Dates: start: 20091116, end: 20120106
  12. SITAGLIPTIN PHOSPHATE HYDRATE [Concomitant]
     Indication: TYPE 2 DIABETES MELLITUS
     Route: 048
     Dates: start: 20110803

REACTIONS (6)
  - CELLULITIS [None]
  - BREAST SWELLING [None]
  - LISTERIOSIS [None]
  - BREAST PAIN [None]
  - BREAST ABSCESS [None]
  - ERYTHEMA [None]
